FAERS Safety Report 15659543 (Version 1)
Quarter: 2018Q4

REPORT INFORMATION
  Report Type: Spontaneous
  Country: LB (occurrence: LB)
  Receive Date: 20181127
  Receipt Date: 20181127
  Transmission Date: 20190205
  Serious: Yes (Death, Other)
  Sender: FDA-Public Use
  Company Number: LB-SUN PHARMACEUTICAL INDUSTRIES LTD-2018RR-191977

PATIENT
  Age: 21 Year
  Sex: Female

DRUGS (19)
  1. ETOPOSIDE. [Suspect]
     Active Substance: ETOPOSIDE
     Indication: ACUTE MYELOID LEUKAEMIA
     Dosage: UNK
     Route: 065
  2. VENETOCLAX. [Suspect]
     Active Substance: VENETOCLAX
     Dosage: 400 MILLIGRAM, QD
     Route: 065
     Dates: start: 20180121
  3. PREDNISONE. [Suspect]
     Active Substance: PREDNISONE
     Indication: ACUTE BIPHENOTYPIC LEUKAEMIA
     Dosage: 60 MILLIGRAM, DAILY
     Dates: start: 20171229
  4. PREDNISONE. [Suspect]
     Active Substance: PREDNISONE
     Dosage: 60 MILLIGRAM, DAILY
     Route: 065
     Dates: start: 20180201
  5. FLUDARABINE [Suspect]
     Active Substance: FLUDARABINE PHOSPHATE
     Indication: ACUTE MYELOID LEUKAEMIA
     Dosage: UNK
     Route: 065
  6. CLOFARABINE. [Suspect]
     Active Substance: CLOFARABINE
     Indication: ACUTE MYELOID LEUKAEMIA
     Dosage: UNK
     Route: 065
  7. DAUNOMYCIN [Suspect]
     Active Substance: DAUNORUBICIN
     Dosage: 25 MILLIGRAM/SQ. METER, WEEKLY FOR 4 WEEKS
     Route: 065
     Dates: start: 20180201
  8. DAUNOMYCIN [Suspect]
     Active Substance: DAUNORUBICIN
     Indication: ACUTE BIPHENOTYPIC LEUKAEMIA
     Dosage: 25 MILLIGRAM/SQ. METER, WEEKLY FOR 4 WEEKS
     Route: 065
     Dates: start: 20171229
  9. IDARUBICIN [Suspect]
     Active Substance: IDARUBICIN
     Indication: ACUTE MYELOID LEUKAEMIA
     Dosage: UNK
     Route: 065
  10. VENETOCLAX. [Suspect]
     Active Substance: VENETOCLAX
     Dosage: 50 MILLIGRAM, DAILY
     Route: 065
     Dates: start: 20180118
  11. VENETOCLAX. [Suspect]
     Active Substance: VENETOCLAX
     Dosage: 200 MILLIGRAM, DAILY
     Route: 065
     Dates: start: 20180120
  12. VINCRISTINE [Suspect]
     Active Substance: VINCRISTINE
     Indication: ACUTE BIPHENOTYPIC LEUKAEMIA
     Dosage: 1.5 MILLIGRAM/SQ. METER, (CAPPED AT 2 MG) WEEKLY FOR 4 WEEKS
     Route: 065
     Dates: start: 20171229
  13. VINCRISTINE [Suspect]
     Active Substance: VINCRISTINE
     Dosage: 1.5 MILLIGRAM/SQ. METER, (CAPPED AT 2 MG) WEEKLY FOR 4 WEEKS
     Route: 065
     Dates: start: 20180201
  14. L-ASPARAGINASE [Suspect]
     Active Substance: ASPARAGINASE
     Indication: ACUTE BIPHENOTYPIC LEUKAEMIA
     Dosage: 6000 UNITS/M2 3 TIMES WEEKLY FOR 9 DOSES
     Route: 065
     Dates: start: 20171229
  15. VENETOCLAX. [Suspect]
     Active Substance: VENETOCLAX
     Indication: ACUTE BIPHENOTYPIC LEUKAEMIA
     Dosage: 20 MILLIGRAM, DAILY
     Route: 065
     Dates: start: 20180117
  16. CYCLOPHOSPHAMIDE. [Suspect]
     Active Substance: CYCLOPHOSPHAMIDE
     Indication: ACUTE MYELOID LEUKAEMIA
     Dosage: UNK
     Route: 065
  17. L-ASPARAGINASE [Suspect]
     Active Substance: ASPARAGINASE
     Dosage: 6000 UNITS/M2 3 TIMES WEEKLY FOR 9 DOSES
     Route: 065
     Dates: start: 20180201
  18. VENETOCLAX. [Suspect]
     Active Substance: VENETOCLAX
     Dosage: 100 MILLIGRAM, DAILY
     Route: 065
     Dates: start: 20180119
  19. CYTARABINE. [Suspect]
     Active Substance: CYTARABINE
     Indication: ACUTE MYELOID LEUKAEMIA
     Dosage: UNK
     Route: 065

REACTIONS (5)
  - Drug ineffective [Unknown]
  - Exposure during pregnancy [Unknown]
  - Bone marrow failure [Unknown]
  - Mucormycosis [Unknown]
  - Acute leukaemia [Unknown]

NARRATIVE: CASE EVENT DATE: 201711
